FAERS Safety Report 4874378-9 (Version None)
Quarter: 2006Q1

REPORT INFORMATION
  Report Type: 
  Country: None (occurrence: None)
  Receive Date: 20060104
  Receipt Date: 20051227
  Transmission Date: 20060701
  Serious: Yes (Other)
  Sender: FDA-Public Use
  Company Number: 2006000047

PATIENT
  Sex: Female

DRUGS (3)
  1. NORVASC [Suspect]
     Indication: HYPERTENSION
     Dosage: 10 MG (10 MG, 1 IN 1 D), ORAL
     Route: 048
  2. DILANTIN [Suspect]
     Indication: CONVULSION
     Dosage: 125 MG, 1 TEASPOON, TWICE A DAY, ORAL
     Route: 048
  3. ASPIRIN [Concomitant]

REACTIONS (2)
  - COUGH [None]
  - DEMENTIA ALZHEIMER'S TYPE [None]
